FAERS Safety Report 9539115 (Version 2)
Quarter: 2013Q4

REPORT INFORMATION
  Report Type: Spontaneous
  Country: US (occurrence: US)
  Receive Date: 20130920
  Receipt Date: 20131017
  Transmission Date: 20140711
  Serious: Yes (Hospitalization)
  Sender: FDA-Public Use
  Company Number: US-BAYER-2013-113820

PATIENT
  Age: 38 Year
  Sex: Female

DRUGS (2)
  1. YASMIN [Suspect]
  2. BUPROPION HYDROCHLORIDE [Concomitant]
     Dosage: UNK
     Dates: start: 20090427

REACTIONS (1)
  - Pulmonary embolism [None]
